FAERS Safety Report 8729886 (Version 2)
Quarter: 2012Q4

REPORT INFORMATION
  Report Type: 
  Country: US (occurrence: US)
  Receive Date: 20120817
  Receipt Date: 20120911
  Transmission Date: 20130627
  Serious: Yes (Death)
  Sender: FDA-Public Use
  Company Number: US-GLAXOSMITHKLINE-A0989777A

PATIENT
  Age: 75 Year
  Sex: Male

DRUGS (9)
  1. VOTRIENT [Suspect]
     Indication: RENAL CANCER
     Dosage: 800MG Per day
     Route: 048
     Dates: start: 20120514
  2. PROMETHAZINE [Concomitant]
  3. ACTOS [Concomitant]
  4. TYLENOL [Concomitant]
  5. TRAMADOL [Concomitant]
  6. GLYBURIDE [Concomitant]
  7. TAMSULOSIN [Concomitant]
  8. FUROSEMIDE [Concomitant]
  9. HYDROCODONE BITARTRATE [Concomitant]

REACTIONS (15)
  - Metastatic renal cell carcinoma [Fatal]
  - Pleural effusion [Unknown]
  - Atrial fibrillation [Unknown]
  - Depressed level of consciousness [Unknown]
  - Respiratory disorder [Unknown]
  - Asthenia [Unknown]
  - Lethargy [Unknown]
  - Dizziness [Unknown]
  - Oxygen saturation decreased [Unknown]
  - Oedema [Unknown]
  - Breath sounds abnormal [Unknown]
  - Wheezing [Unknown]
  - Sinus tachycardia [Unknown]
  - Drug ineffective [Unknown]
  - Oedema peripheral [Unknown]
